FAERS Safety Report 7639025-1 (Version None)
Quarter: 2011Q3

REPORT INFORMATION
  Report Type: 
  Country: None (occurrence: None)
  Receive Date: 20110727
  Receipt Date: 20110721
  Transmission Date: 20111222
  Serious: No
  Sender: FDA-Public Use
  Company Number: US-PFIZER INC-2011166346

PATIENT
  Sex: Female
  Weight: 90.7 kg

DRUGS (2)
  1. VITAMIN TAB [Concomitant]
  2. PREMARIN [Suspect]
     Indication: VULVOVAGINAL DRYNESS
     Dosage: UNK
     Route: 061
     Dates: start: 20080101

REACTIONS (1)
  - HEADACHE [None]
